FAERS Safety Report 6803672-7 (Version None)
Quarter: 2010Q2

REPORT INFORMATION
  Report Type: 
  Country: None (occurrence: None)
  Receive Date: 20100628
  Receipt Date: 20100622
  Transmission Date: 20101027
  Serious: Yes (Other)
  Sender: FDA-Public Use
  Company Number: US-JNJCH-2007316894

PATIENT
  Sex: Female

DRUGS (2)
  1. LISTERINE [Suspect]
     Dosage: TEXT:UNKNOWN
     Route: 048
  2. SYNTHROID [Concomitant]
     Dosage: TEXT:UNSPECIFIED

REACTIONS (6)
  - BURNING SENSATION [None]
  - DYSPNOEA [None]
  - GINGIVAL BLEEDING [None]
  - SWOLLEN TONGUE [None]
  - THROAT TIGHTNESS [None]
  - TONGUE DISORDER [None]
